FAERS Safety Report 6138127-9 (Version None)
Quarter: 2009Q1

REPORT INFORMATION
  Report Type: 
  Country: None (occurrence: None)
  Receive Date: 20090331
  Receipt Date: 20090323
  Transmission Date: 20090719
  Serious: Yes (Hospitalization)
  Sender: FDA-Public Use
  Company Number: FI-ABBOTT-08P-055-0448869-00

PATIENT
  Sex: Female

DRUGS (12)
  1. HUMIRA [Suspect]
     Indication: RHEUMATOID ARTHRITIS
     Route: 058
     Dates: start: 20070201, end: 20080201
  2. TREXAN [Concomitant]
     Indication: RHEUMATOID ARTHRITIS
     Route: 048
  3. FOLIC ACID [Concomitant]
     Indication: DRUG USE FOR UNKNOWN INDICATION
     Route: 048
  4. SANDIMMUNE [Concomitant]
     Indication: RHEUMATOID ARTHRITIS
     Route: 048
  5. ATACAND [Concomitant]
     Indication: BLOOD PRESSURE MANAGEMENT
     Route: 048
  6. ESCOR [Concomitant]
     Indication: BLOOD PRESSURE MANAGEMENT
     Route: 048
  7. CALCICHEW D3 FORTE [Concomitant]
     Indication: MINERAL SUPPLEMENTATION
     Route: 048
  8. CALCICHEW D3 FORTE [Concomitant]
     Indication: VITAMIN SUPPLEMENTATION
  9. FOSAVANCE [Concomitant]
     Indication: OSTEOPOROSIS
     Route: 048
  10. PANACOD [Concomitant]
     Indication: PAIN MANAGEMENT
     Route: 048
  11. ARTHROTEC [Concomitant]
     Indication: PAIN MANAGEMENT
  12. PREDNISOLONE [Concomitant]
     Indication: RHEUMATOID ARTHRITIS
     Route: 048

REACTIONS (7)
  - DIZZINESS [None]
  - DYSARTHRIA [None]
  - HYPONATRAEMIA [None]
  - ORTHOSTATIC HYPOTENSION [None]
  - RASH PRURITIC [None]
  - SPEECH DISORDER [None]
  - SYNCOPE [None]
